FAERS Safety Report 7480633-9 (Version None)
Quarter: 2011Q2

REPORT INFORMATION
  Report Type: 
  Country: None (occurrence: None)
  Receive Date: 20110516
  Receipt Date: 20110503
  Transmission Date: 20111010
  Serious: Yes (Other)
  Sender: FDA-Public Use
  Company Number: DE-JNJFOC-20110501967

PATIENT
  Sex: Male

DRUGS (7)
  1. ALLOPURINOL [Concomitant]
     Route: 065
  2. DOXORUBICIN HCL [Suspect]
     Indication: MYCOSIS FUNGOIDES
     Route: 042
     Dates: start: 20110331
  3. SIMVASTATIN [Concomitant]
     Route: 065
  4. TORSEMIDE [Concomitant]
     Route: 065
  5. CARMEN [Concomitant]
     Route: 065
  6. CARVEDILOL [Concomitant]
     Route: 065
  7. RAMIPRIL [Concomitant]
     Route: 065

REACTIONS (6)
  - BLOOD ALKALINE PHOSPHATASE INCREASED [None]
  - CHOLESTASIS [None]
  - LEUKOCYTOSIS [None]
  - ALANINE AMINOTRANSFERASE INCREASED [None]
  - GAMMA-GLUTAMYLTRANSFERASE INCREASED [None]
  - ASPARTATE AMINOTRANSFERASE INCREASED [None]
